FAERS Safety Report 11171929 (Version 2)
Quarter: 2015Q2

REPORT INFORMATION
  Report Type: Spontaneous
  Country: US (occurrence: US)
  Receive Date: 20150608
  Receipt Date: 20150626
  Transmission Date: 20150821
  Serious: Yes (Hospitalization, Other)
  Sender: FDA-Public Use
  Company Number: US-PFIZER INC-2015189119

PATIENT
  Age: 66 Year
  Sex: Female
  Weight: 85 kg

DRUGS (3)
  1. COUMADIN [Concomitant]
     Active Substance: WARFARIN SODIUM
     Indication: THROMBOSIS
     Dosage: 36 MG, WEEKLY, 4MG TABLET BY MOUTH THREE DAYS A WEEK AND 6 MG THE REMAINING DAYS
     Route: 048
  2. REVATIO [Suspect]
     Active Substance: SILDENAFIL CITRATE
     Indication: RESPIRATORY FAILURE
     Dosage: 40 MG, 3X/DAY, 20 MG 2 TABLETS BY MOUTH THREE TIMES A DAY
     Route: 048
     Dates: start: 2014
  3. LASIX [Concomitant]
     Active Substance: FUROSEMIDE
     Indication: RIGHT VENTRICULAR FAILURE
     Dosage: 40 MG, 1X/DAY
     Route: 048

REACTIONS (1)
  - Pneumonia [Recovering/Resolving]
